FAERS Safety Report 20589430 (Version 5)
Quarter: 2023Q4

REPORT INFORMATION
  Report Type: Report from Study
  Country: AT (occurrence: AT)
  Receive Date: 20220314
  Receipt Date: 20231007
  Transmission Date: 20240109
  Serious: Yes (Hospitalization)
  Sender: FDA-Public Use
  Company Number: None

PATIENT
  Age: 47 Year
  Sex: Female
  Weight: 58 kg

DRUGS (58)
  1. PACLITAXEL [Suspect]
     Active Substance: PACLITAXEL
     Indication: HER2 positive breast cancer
     Route: 042
     Dates: start: 20190724, end: 20190912
  2. XELODA [Suspect]
     Active Substance: CAPECITABINE
     Indication: HER2 positive breast cancer
     Dosage: FREQUENCY: OTHER MOST RECENT DOSE PRIOR TO THE EVENT: 09/JAN/2021
     Route: 048
     Dates: start: 20200923, end: 20201220
  3. HERCEPTIN [Suspect]
     Active Substance: TRASTUZUMAB
     Indication: HER2 positive breast cancer
     Dosage: MOST RECENT DOSE PRIOR TO THE EVENT: 6/FEB/2023 SINGLE 3 WEEKS
     Dates: start: 20190724, end: 20190912
  4. ADO-TRASTUZUMAB EMTANSINE [Suspect]
     Active Substance: ADO-TRASTUZUMAB EMTANSINE
     Indication: HER2 positive breast cancer
     Dosage: MOST RECENT DOSE PRIOR TO THE EVENT: 03/JUL/2020
     Route: 042
     Dates: start: 20191014, end: 20200518
  5. PERTUZUMAB [Suspect]
     Active Substance: PERTUZUMAB
     Indication: HER2 positive breast cancer
     Route: 042
     Dates: start: 20190724, end: 20190912
  6. LAPATINIB [Suspect]
     Active Substance: LAPATINIB
     Indication: HER2 positive breast cancer
     Dosage: FREQUENCY: OTHER MOST RECENT DOSE PRIOR TO THE EVENT: 09/JAN/2021
     Route: 048
     Dates: start: 20200923, end: 20211228
  7. TRASTUZUMAB DERUXTECAN [Suspect]
     Active Substance: TRASTUZUMAB DERUXTECAN
     Indication: HER2 positive breast cancer
     Dates: start: 20220110, end: 20220131
  8. TUCATINIB [Suspect]
     Active Substance: TUCATINIB
     Indication: HER2 positive breast cancer
     Dosage: MOST RECENT DOSE RECEIVED ON 22-JAN-2023
     Dates: start: 20230102
  9. DRONABINOL [Concomitant]
     Active Substance: DRONABINOL
     Dosage: ONGOING  CHECKED
     Dates: start: 20190716
  10. ACETAMINOPHEN [Concomitant]
     Active Substance: ACETAMINOPHEN
     Indication: COVID-19
     Dosage: ONGOING  NOT CHECKED
     Dates: start: 20210302, end: 20210303
  11. EUTHYROX [Concomitant]
     Active Substance: LEVOTHYROXINE SODIUM
     Dosage: ONGOING  CHECKED
     Dates: start: 20190703, end: 20200929
  12. LOVENOX [Concomitant]
     Active Substance: ENOXAPARIN SODIUM
     Indication: COVID-19
     Dosage: ONGOING  NOT CHECKED
     Dates: start: 20210302, end: 20210305
  13. TRAZODONE HYDROCHLORIDE [Concomitant]
     Active Substance: TRAZODONE HYDROCHLORIDE
     Dosage: ONGOING  CHECKED
     Dates: start: 20190716, end: 20200926
  14. DEXAMETHASONE [Concomitant]
     Active Substance: DEXAMETHASONE
     Indication: COVID-19
     Dosage: ONGOING  NOT CHECKED
     Dates: start: 20210302, end: 20210304
  15. CEOLAT [Concomitant]
     Indication: Product used for unknown indication
     Dosage: ONGOING  CHECKED
     Dates: start: 20190815
  16. ZOFRAN [Concomitant]
     Active Substance: ONDANSETRON HYDROCHLORIDE
     Indication: COVID-19
     Dosage: ONGOING  CHECKED
     Dates: start: 20190704
  17. PANTOPRAZOLE SODIUM [Concomitant]
     Active Substance: PANTOPRAZOLE SODIUM
     Indication: COVID-19
     Dosage: ONGOING  NOT CHECKED
     Dates: start: 20210302, end: 20210303
  18. HYDROMORPHONE HYDROCHLORIDE [Concomitant]
     Active Substance: HYDROMORPHONE HYDROCHLORIDE
     Dosage: ONGOING  CHECKED
     Dates: start: 20190716
  19. CITALOPRAM [Concomitant]
     Active Substance: CITALOPRAM HYDROBROMIDE
     Indication: Product used for unknown indication
     Dosage: ONGOING  CHECKED
     Dates: start: 20190715
  20. ALPRAZOLAM [Concomitant]
     Active Substance: ALPRAZOLAM
     Dosage: ONGOING CHECKED
     Dates: start: 20190715
  21. OLANZAPINE [Concomitant]
     Active Substance: OLANZAPINE
     Dosage: ONGOING  CHECKED
     Dates: start: 20190904
  22. POLYETHYLENE GLYCOL 4000 [Concomitant]
     Active Substance: POLYETHYLENE GLYCOL 4000
     Indication: Product used for unknown indication
     Dosage: ONGOING  CHECKED
     Dates: start: 20190705
  23. SUCRALAN [Concomitant]
     Indication: Product used for unknown indication
     Dosage: ONGOING  CHECKED
     Dates: start: 20190701
  24. ACETAMINOPHEN [Concomitant]
     Active Substance: ACETAMINOPHEN
     Indication: Product used for unknown indication
     Dosage: ONGOING  CHECKED
     Dates: start: 20190701
  25. LOPERAMIDE HYDROCHLORIDE [Concomitant]
     Active Substance: LOPERAMIDE HYDROCHLORIDE
     Indication: Diarrhoea
     Dosage: ONGOING - CHECKED
     Dates: start: 20210215
  26. LENDORM [Concomitant]
     Active Substance: BROTIZOLAM
     Indication: Insomnia
     Dosage: ONGOING - CHECKED
     Dates: start: 20211229, end: 20211229
  27. ASCORBIC ACID\CALCIUM PHOSPHATE\CHOLECALCIFEROL\CITRIC ACID MONOHYDRAT [Concomitant]
     Active Substance: ASCORBIC ACID\CALCIUM PHOSPHATE\CHOLECALCIFEROL\CITRIC ACID MONOHYDRATE
     Dosage: ONGOING - CHECKED
     Dates: start: 20190717
  28. FERRIC CARBOXYMALTOSE [Concomitant]
     Active Substance: FERRIC CARBOXYMALTOSE
     Dosage: ONGOING  NOT CHECKED
     Dates: start: 20220114, end: 20220114
  29. URSODIOL [Concomitant]
     Active Substance: URSODIOL
  30. EMEND [Concomitant]
     Active Substance: APREPITANT
     Dates: start: 20220621
  31. UNASYN [Concomitant]
     Active Substance: AMPICILLIN SODIUM\SULBACTAM SODIUM
  32. ORNITHINE ASPARTATE [Concomitant]
     Active Substance: ORNITHINE ASPARTATE
  33. NEULASTA [Concomitant]
     Active Substance: PEGFILGRASTIM
  34. HYDROMORPHONE HYDROCHLORIDE [Concomitant]
     Active Substance: HYDROMORPHONE HYDROCHLORIDE
     Dosage: ONGOING  CHECKED
     Dates: start: 20190716
  35. DRONABINOL [Concomitant]
     Active Substance: DRONABINOL
     Dosage: ONGOING  CHECKED
     Dates: start: 20190705
  36. DEXAMETHASONE [Concomitant]
     Active Substance: DEXAMETHASONE
     Indication: COVID-19
     Dates: start: 20210705, end: 20210914
  37. EMEND [Concomitant]
     Active Substance: APREPITANT
     Dates: start: 20220621
  38. EUTHYROX [Concomitant]
     Active Substance: LEVOTHYROXINE SODIUM
     Dates: end: 2019
  39. DEXAMETHASONE [Concomitant]
     Active Substance: DEXAMETHASONE
     Indication: Intracranial pressure increased
     Dates: start: 20190705, end: 20190914
  40. XELODA [Suspect]
     Active Substance: CAPECITABINE
     Indication: HER2 positive breast cancer
     Dosage: 0.25 DAYS, MOST RECENT DOSE PRIOR TO THE EVENT: 2/JAN/2023
     Route: 048
     Dates: start: 20210109, end: 20211209
  41. DEXAMETHASONE [Concomitant]
     Active Substance: DEXAMETHASONE
     Indication: COVID-19
     Dosage: ONGOING  NOT CHECKED
     Dates: start: 20210704
  42. ZOFRAN [Concomitant]
     Active Substance: ONDANSETRON HYDROCHLORIDE
     Indication: COVID-19
     Dosage: ONGOING  CHECKED
     Dates: start: 20210302, end: 20210302
  43. ZOFRAN [Concomitant]
     Active Substance: ONDANSETRON HYDROCHLORIDE
     Indication: COVID-19
     Dosage: ONGOING  CHECKED
     Dates: start: 20190701
  44. ZOFRAN [Concomitant]
     Active Substance: ONDANSETRON HYDROCHLORIDE
     Indication: COVID-19
     Dosage: ONGOING  CHECKED
     Dates: start: 20220110
  45. PANTOPRAZOLE SODIUM [Concomitant]
     Active Substance: PANTOPRAZOLE SODIUM
     Indication: COVID-19
     Dosage: ONGOING  NOT CHECKED
     Dates: start: 20190701
  46. DEXAMETHASONE [Concomitant]
     Active Substance: DEXAMETHASONE
     Indication: COVID-19
     Dosage: ONGOING  NOT CHECKED
     Dates: start: 20211229, end: 20220110
  47. DEXAMETHASONE [Concomitant]
     Active Substance: DEXAMETHASONE
     Indication: COVID-19
     Dosage: ONGOING  NOT CHECKED
     Dates: start: 20220113, end: 20220114
  48. DEXAMETHASONE [Concomitant]
     Active Substance: DEXAMETHASONE
     Indication: Intracranial pressure increased
     Dosage: ONGOING  NOT CHECKED
     Dates: start: 20220115
  49. DEXAMETHASONE [Concomitant]
     Active Substance: DEXAMETHASONE
     Indication: Intracranial pressure increased
     Dosage: ONGOING  NOT CHECKED
     Dates: start: 20190704, end: 20190912
  50. DEXAMETHASONE [Concomitant]
     Active Substance: DEXAMETHASONE
     Indication: Intracranial pressure increased
     Dosage: ONGOING  NOT CHECKED
     Dates: start: 20220111, end: 20220112
  51. DEXAMETHASONE [Concomitant]
     Active Substance: DEXAMETHASONE
     Indication: Intracranial pressure increased
     Dosage: ONGOING  NOT CHECKED
     Dates: start: 20220110
  52. HYDROMORPHONE HYDROCHLORIDE [Concomitant]
     Active Substance: HYDROMORPHONE HYDROCHLORIDE
     Dosage: ONGOING CHECKED
     Dates: start: 20220207
  53. DEXAMETHASONE [Concomitant]
     Active Substance: DEXAMETHASONE
     Indication: COVID-19
     Dosage: ONGOING  NOT CHECKED
     Dates: start: 20220622
  54. DRONABINOL [Concomitant]
     Active Substance: DRONABINOL
     Dosage: ONGOING  CHECKED
     Dates: start: 20210705
  55. LAPATINIB [Suspect]
     Active Substance: LAPATINIB
     Indication: HER2 positive breast cancer
     Dates: start: 20210109, end: 20211216
  56. ADO-TRASTUZUMAB EMTANSINE [Suspect]
     Active Substance: ADO-TRASTUZUMAB EMTANSINE
     Indication: HER2 positive breast cancer
     Dosage: SINGLE 3 WEEKS
     Route: 042
     Dates: start: 20200703, end: 20200703
  57. TRASTUZUMAB DERUXTECAN [Suspect]
     Active Substance: TRASTUZUMAB DERUXTECAN
     Indication: HER2 positive breast cancer
     Dates: start: 20220419
  58. TRASTUZUMAB DERUXTECAN [Suspect]
     Active Substance: TRASTUZUMAB DERUXTECAN
     Indication: HER2 positive breast cancer
     Dates: start: 20220324, end: 20220324

REACTIONS (1)
  - COVID-19 [Recovered/Resolved]

NARRATIVE: CASE EVENT DATE: 20210222
